FAERS Safety Report 23556673 (Version 2)
Quarter: 2025Q1

REPORT INFORMATION
  Report Type: Spontaneous
  Country: IT (occurrence: IT)
  Receive Date: 20240223
  Receipt Date: 20250305
  Transmission Date: 20250408
  Serious: Yes (Other)
  Sender: DR REDDYS
  Company Number: None

PATIENT
  Age: 70 Year
  Sex: Male

DRUGS (2)
  1. AZACITIDINE [Suspect]
     Active Substance: AZACITIDINE
     Indication: Acute myeloid leukaemia
     Dosage: 75 MG/M2/DAY FOR SEVEN DAYS
     Route: 058
     Dates: start: 20230705, end: 20230713
  2. VENETOCLAX [Suspect]
     Active Substance: VENETOCLAX
     Indication: Acute myeloid leukaemia
     Dosage: 400 MG/DAY
     Route: 048
     Dates: start: 20230705, end: 20230718

REACTIONS (1)
  - Immune-mediated cytopenia [Recovered/Resolved]

NARRATIVE: CASE EVENT DATE: 20231017
